FAERS Safety Report 14779276 (Version 1)
Quarter: 2018Q2

REPORT INFORMATION
  Report Type: Spontaneous
  Country: US (occurrence: US)
  Receive Date: 20180412
  Receipt Date: 20180412
  Transmission Date: 20180711
  Serious: Yes (Hospitalization)
  Sender: FDA-Public Use
  Company Number: None

PATIENT
  Age: 58 Year
  Sex: Female

DRUGS (6)
  1. HUMIRA [Suspect]
     Active Substance: ADALIMUMAB
     Indication: RHEUMATOID ARTHRITIS
     Route: 058
     Dates: start: 20180121
  2. METHOTREXATE 25MG/ML INJECTION [Concomitant]
  3. FOLIC ACID 1MG [Concomitant]
  4. SALSALATE 500MG [Concomitant]
  5. ZOLPIDEM [Concomitant]
     Active Substance: ZOLPIDEM\ZOLPIDEM TARTRATE
  6. ALPRAZOLAM 0.5MG [Concomitant]
     Active Substance: ALPRAZOLAM

REACTIONS (2)
  - Infection [None]
  - Intentional dose omission [None]

NARRATIVE: CASE EVENT DATE: 20180301
